FAERS Safety Report 12689310 (Version 1)
Quarter: 2016Q3

REPORT INFORMATION
  Report Type: Spontaneous
  Country: VE (occurrence: VE)
  Receive Date: 20160826
  Receipt Date: 20160826
  Transmission Date: 20161109
  Serious: Yes (Hospitalization)
  Sender: FDA-Public Use
  Company Number: PHHY2016VE116791

PATIENT
  Age: 8 Year
  Sex: Male
  Weight: 28 kg

DRUGS (5)
  1. TRILEPTAL [Suspect]
     Active Substance: OXCARBAZEPINE
     Indication: ENCEPHALOPATHY
     Dosage: 1200 MG, QD (DOSAGE FORM STRENGTH: 300 MG)
     Route: 048
     Dates: start: 201501
  2. PROVICAR//LEVOCARNITINE [Concomitant]
     Indication: PRODUCT USED FOR UNKNOWN INDICATION
     Route: 065
  3. TRILEPTAL [Suspect]
     Active Substance: OXCARBAZEPINE
     Indication: SEIZURE
  4. TRILEPTAL [Suspect]
     Active Substance: OXCARBAZEPINE
     Indication: SEIZURE
     Dosage: 1200 MG, QD (DOSAGE FORM STRENGTH: 600 MG)
     Route: 048
     Dates: start: 201501
  5. TRILEPTAL [Suspect]
     Active Substance: OXCARBAZEPINE
     Indication: ENCEPHALOPATHY
     Dosage: 20 CM3, QD
     Route: 048

REACTIONS (4)
  - Psychomotor hyperactivity [Recovering/Resolving]
  - Seizure [Recovering/Resolving]
  - Product use issue [Unknown]
  - Headache [Recovering/Resolving]

NARRATIVE: CASE EVENT DATE: 201502
